FAERS Safety Report 5745230-1 (Version None)
Quarter: 2008Q2

REPORT INFORMATION
  Report Type: 
  Country: None (occurrence: None)
  Receive Date: 20080521
  Receipt Date: 20080514
  Transmission Date: 20081010
  Serious: Yes (Life-Threatening)
  Sender: FDA-Public Use
  Company Number: B0516795A

PATIENT
  Age: 66 Year
  Sex: Female
  Weight: 112 kg

DRUGS (6)
  1. AVANDAMET [Suspect]
     Dosage: 2TAB PER DAY
     Route: 048
     Dates: start: 20070401, end: 20080401
  2. AMAREL [Concomitant]
     Dosage: 6MG PER DAY
     Route: 048
     Dates: start: 20070101, end: 20080401
  3. HYPERIUM [Concomitant]
     Dosage: 2MG TWICE PER DAY
     Route: 048
     Dates: start: 20060101, end: 20070101
  4. ESIDRIX [Concomitant]
     Dosage: 37.5MG PER DAY
     Route: 048
     Dates: start: 20070101, end: 20080301
  5. GLUCOPHAGE [Concomitant]
     Dosage: 1000MG THREE TIMES PER DAY
     Route: 048
     Dates: start: 20070101
  6. HYTACAND [Concomitant]
     Dosage: 8MG PER DAY
     Route: 048
     Dates: start: 20070101, end: 20080301

REACTIONS (7)
  - CARDIAC FAILURE [None]
  - CHEST PAIN [None]
  - DYSPNOEA [None]
  - HYPERTENSIVE CRISIS [None]
  - MALAISE [None]
  - OEDEMA PERIPHERAL [None]
  - WEIGHT INCREASED [None]
